FAERS Safety Report 16797332 (Version 1)
Quarter: 2019Q3

REPORT INFORMATION
  Report Type: Spontaneous
  Country: US (occurrence: US)
  Receive Date: 20190912
  Receipt Date: 20190912
  Transmission Date: 20191005
  Serious: No
  Sender: FDA-Public Use
  Company Number: US-ASTRAZENECA-2019SF17520

PATIENT
  Age: 5465 Day
  Sex: Female
  Weight: 54.4 kg

DRUGS (2)
  1. MONTELUKAST [Concomitant]
     Active Substance: MONTELUKAST SODIUM
     Indication: ASTHMA
     Route: 048
     Dates: start: 2016
  2. SYMBICORT [Suspect]
     Active Substance: BUDESONIDE\FORMOTEROL FUMARATE DIHYDRATE
     Indication: ASTHMA
     Dosage: 80/4.5MCG, TWO TIMES A DAY
     Route: 055
     Dates: start: 2016

REACTIONS (3)
  - Intentional device misuse [Unknown]
  - Product prescribing issue [Unknown]
  - Device issue [Unknown]

NARRATIVE: CASE EVENT DATE: 20190812
